FAERS Safety Report 25770204 (Version 1)
Quarter: 2025Q3

REPORT INFORMATION
  Report Type: Spontaneous
  Country: CN (occurrence: CN)
  Receive Date: 20250907
  Receipt Date: 20250907
  Transmission Date: 20251021
  Serious: Yes (Hospitalization)
  Sender: BEIGENE
  Company Number: CN-BEIGENE-BGN-2025-014845

PATIENT
  Age: 59 Year
  Weight: 60 kg

DRUGS (14)
  1. TISLELIZUMAB [Suspect]
     Active Substance: TISLELIZUMAB
     Indication: Lung neoplasm malignant
     Dosage: 200 MILLIGRAM, Q3WK
  2. TISLELIZUMAB [Suspect]
     Active Substance: TISLELIZUMAB
     Dosage: 200 MILLIGRAM, Q3WK
     Route: 041
  3. TISLELIZUMAB [Suspect]
     Active Substance: TISLELIZUMAB
     Dosage: 200 MILLIGRAM, Q3WK
     Route: 041
  4. TISLELIZUMAB [Suspect]
     Active Substance: TISLELIZUMAB
     Dosage: 200 MILLIGRAM, Q3WK
  5. CARBOPLATIN [Concomitant]
     Active Substance: CARBOPLATIN
     Indication: Lung neoplasm malignant
     Dosage: 300 MILLIGRAM, Q3WK
     Route: 041
  6. CARBOPLATIN [Concomitant]
     Active Substance: CARBOPLATIN
     Dosage: 300 MILLIGRAM, Q3WK
  7. SODIUM CHLORIDE [Concomitant]
     Active Substance: SODIUM CHLORIDE
     Indication: Vehicle solution use
  8. SODIUM CHLORIDE [Concomitant]
     Active Substance: SODIUM CHLORIDE
     Route: 041
  9. SODIUM CHLORIDE [Concomitant]
     Active Substance: SODIUM CHLORIDE
  10. SODIUM CHLORIDE [Concomitant]
     Active Substance: SODIUM CHLORIDE
     Route: 041
  11. PACLITAXEL [Concomitant]
     Active Substance: PACLITAXEL
     Indication: Lung neoplasm malignant
     Dosage: 400 MILLIGRAM, Q3WK
     Route: 041
  12. PACLITAXEL [Concomitant]
     Active Substance: PACLITAXEL
     Dosage: 400 MILLIGRAM, Q3WK
  13. DEXTROSE [Concomitant]
     Active Substance: DEXTROSE MONOHYDRATE
     Indication: Vehicle solution use
     Route: 041
  14. DEXTROSE [Concomitant]
     Active Substance: DEXTROSE MONOHYDRATE

REACTIONS (1)
  - Myelosuppression [Recovering/Resolving]
